FAERS Safety Report 9183761 (Version 1)
Quarter: 2013Q1

REPORT INFORMATION
  Report Type: Spontaneous
  Country: US (occurrence: US)
  Receive Date: 20130322
  Receipt Date: 20130322
  Transmission Date: 20140127
  Serious: No
  Sender: FDA-Public Use
  Company Number: US-TARO-2012P1047648

PATIENT
  Age: 70 Year
  Sex: Female
  Weight: 61.24 kg

DRUGS (14)
  1. NYSTATIN [Suspect]
     Route: 048
     Dates: start: 20120620, end: 20120628
  2. GABAPENTIN [Concomitant]
     Dates: start: 2008
  3. GABAPENTIN [Concomitant]
     Dates: start: 2008
  4. SULFASALAZINE [Concomitant]
     Dates: start: 2008
  5. ALLEGRA-D [Concomitant]
  6. CVS COLACE STOOL SOFTENER [Concomitant]
  7. ERYTHROMYCIN OINTMENT [Concomitant]
     Dates: start: 20120627
  8. UNSPECIFIED BLOOD PRESSURE MEDICATIONS [Concomitant]
  9. LISINOPRIL [Concomitant]
  10. NEXIUM [Concomitant]
  11. HYDROCODONE [Concomitant]
     Route: 048
  12. PHENOBARBITAL [Concomitant]
     Dates: start: 2011
  13. MAXZIDE OR FUROSEMIDE [Concomitant]
  14. LEVOTHYROXINE [Concomitant]

REACTIONS (6)
  - Cough [Recovered/Resolved]
  - Throat irritation [Not Recovered/Not Resolved]
  - Oesophageal pain [Not Recovered/Not Resolved]
  - Eyelids pruritus [Not Recovered/Not Resolved]
  - Dry eye [Unknown]
  - Eyelid exfoliation [Not Recovered/Not Resolved]
